FAERS Safety Report 10711829 (Version 1)
Quarter: 2015Q1

REPORT INFORMATION
  Report Type: Spontaneous
  Country: GB (occurrence: GB)
  Receive Date: 20150114
  Receipt Date: 20150114
  Transmission Date: 20150721
  Serious: Yes (Disabling, Other)
  Sender: FDA-Public Use
  Company Number: GB-009507513-1501GBR003984

PATIENT
  Sex: Female

DRUGS (4)
  1. JANUVIA [Suspect]
     Active Substance: SITAGLIPTIN PHOSPHATE
     Indication: TYPE 2 DIABETES MELLITUS
     Dosage: 25 MG, UNK
     Route: 048
     Dates: start: 201407
  2. OXYBUTYNIN [Concomitant]
     Active Substance: OXYBUTYNIN
     Dosage: UNK, BIW
  3. METFORMIN [Concomitant]
     Active Substance: METFORMIN HYDROCHLORIDE
     Dosage: 500 MG, QD
  4. DANTROLENE [Concomitant]
     Active Substance: DANTROLENE
     Dosage: 50 MG, QD

REACTIONS (4)
  - Drug effect incomplete [Unknown]
  - Blood glucose increased [Unknown]
  - Secondary progressive multiple sclerosis [Unknown]
  - Adverse event [Unknown]
